FAERS Safety Report 23305666 (Version 1)
Quarter: 2023Q4

REPORT INFORMATION
  Report Type: Spontaneous
  Country: DK (occurrence: DK)
  Receive Date: 20231218
  Receipt Date: 20231218
  Transmission Date: 20240110
  Serious: Yes (Hospitalization)
  Sender: FDA-Public Use
  Company Number: None

PATIENT
  Age: 58 Year
  Sex: Female
  Weight: 72 kg

DRUGS (5)
  1. WEGOVY [Suspect]
     Active Substance: SEMAGLUTIDE
     Dosage: 0.5 MG, QW
     Dates: start: 20230814, end: 202311
  2. WEGOVY [Suspect]
     Active Substance: SEMAGLUTIDE
     Indication: Overweight
     Dosage: UNK
  3. MELATONIN [Concomitant]
     Active Substance: MELATONIN
     Indication: Insomnia
     Dosage: UNK
     Dates: start: 2018
  4. CEFUROXIME [Concomitant]
     Active Substance: CEFUROXIME
     Indication: Diuretic therapy
     Dosage: UNK
     Dates: start: 202301
  5. AMLODIPIN ACTAVIS [AMLODIPINE MESILATE] [Concomitant]
     Indication: Migraine
     Dosage: UNK
     Dates: start: 2019

REACTIONS (4)
  - Hepatic enzyme increased [Not Recovered/Not Resolved]
  - Constipation [Recovered/Resolved]
  - Nausea [Unknown]
  - Vomiting [Recovered/Resolved]

NARRATIVE: CASE EVENT DATE: 20231122
